FAERS Safety Report 7152125-8 (Version None)
Quarter: 2010Q4

REPORT INFORMATION
  Report Type: 
  Country: None (occurrence: None)
  Receive Date: 20101213
  Receipt Date: 20101202
  Transmission Date: 20110411
  Serious: Yes (Hospitalization, Other)
  Sender: FDA-Public Use
  Company Number: US-BIOGENIDEC-2010BI036695

PATIENT
  Age: 64 Year
  Sex: Female
  Weight: 77 kg

DRUGS (2)
  1. AVONEX [Suspect]
     Indication: MULTIPLE SCLEROSIS
     Route: 030
     Dates: start: 20090102
  2. AMITRIPTYLINE [Concomitant]
     Indication: INSOMNIA
     Dates: start: 20050101

REACTIONS (6)
  - APPENDICITIS [None]
  - BLOOD GLUCOSE INCREASED [None]
  - FALL [None]
  - PULMONARY OEDEMA [None]
  - SKIN LACERATION [None]
  - WEIGHT DECREASED [None]
